FAERS Safety Report 9637179 (Version 1)
Quarter: 2013Q4

REPORT INFORMATION
  Report Type: Spontaneous
  Country: US (occurrence: None)
  Receive Date: 20131022
  Receipt Date: 20131022
  Transmission Date: 20140711
  Serious: Yes (Life-Threatening, Hospitalization)
  Sender: FDA-Public Use
  Company Number: None

PATIENT
  Age: 38 Year
  Sex: Female
  Weight: 72.58 kg

DRUGS (1)
  1. LIOTHYRONINE [Suspect]
     Indication: AUTOIMMUNE THYROIDITIS
     Dosage: 1 PILL ONCE DAILY TAKEN BY MOUTH
     Route: 048

REACTIONS (7)
  - Headache [None]
  - Vomiting [None]
  - Overdose [None]
  - Heart rate increased [None]
  - Delirium [None]
  - Confusional state [None]
  - Speech disorder [None]
